FAERS Safety Report 19406088 (Version 1)
Quarter: 2021Q2

REPORT INFORMATION
  Report Type: Spontaneous
  Country: FR (occurrence: FR)
  Receive Date: 20210611
  Receipt Date: 20210611
  Transmission Date: 20210717
  Serious: Yes (Other)
  Sender: FDA-Public Use
  Company Number: FR-ASTRAZENECA-2021A511502

PATIENT
  Age: 42 Year
  Sex: Female

DRUGS (1)
  1. LYNPARZA [Suspect]
     Active Substance: OLAPARIB
     Indication: PANCREATIC CARCINOMA
     Dosage: UNKOWN DOSE
     Route: 048

REACTIONS (3)
  - Hepatitis [Unknown]
  - Product dispensing error [Unknown]
  - Off label use [Unknown]
